FAERS Safety Report 23796574 (Version 3)
Quarter: 2025Q3

REPORT INFORMATION
  Report Type: Spontaneous
  Country: CA (occurrence: CA)
  Receive Date: 20240430
  Receipt Date: 20250827
  Transmission Date: 20251020
  Serious: Yes (Other)
  Sender: Haleon PLC
  Company Number: CA-002147023-NVSC2024CA080555

PATIENT
  Age: 69 Year
  Sex: Female

DRUGS (8)
  1. DICLOFENAC SODIUM [Suspect]
     Active Substance: DICLOFENAC SODIUM
     Indication: Pain
  2. FUROSEMIDE [Suspect]
     Active Substance: FUROSEMIDE
     Indication: Urinary retention
  3. CETIRIZINE [Suspect]
     Active Substance: CETIRIZINE HYDROCHLORIDE
     Indication: Product used for unknown indication
  4. BACLOFEN [Suspect]
     Active Substance: BACLOFEN
     Indication: Product used for unknown indication
  5. PANTOPRAZOLE SODIUM [Suspect]
     Active Substance: PANTOPRAZOLE SODIUM
     Indication: Prophylaxis against gastrointestinal ulcer
  6. DIMENHYDRINATE [Suspect]
     Active Substance: DIMENHYDRINATE
     Indication: Product used for unknown indication
  7. TRAZODONE [Suspect]
     Active Substance: TRAZODONE HYDROCHLORIDE
     Indication: Insomnia
  8. CAFFEINE [Suspect]
     Active Substance: CAFFEINE
     Indication: Product used for unknown indication

REACTIONS (5)
  - Urinary retention [Unknown]
  - Insomnia [Unknown]
  - Cognitive disorder [Unknown]
  - Oedema [Unknown]
  - Blood magnesium decreased [Unknown]
